FAERS Safety Report 4892502-9 (Version None)
Quarter: 2006Q1

REPORT INFORMATION
  Report Type: 
  Country: None (occurrence: None)
  Receive Date: 20060125
  Receipt Date: 20060125
  Transmission Date: 20060701
  Serious: Yes (Life-Threatening, Hospitalization)
  Sender: FDA-Public Use
  Company Number: None

PATIENT
  Sex: Female

DRUGS (23)
  1. LINEZOLID [Suspect]
     Indication: INFECTION
     Dosage: 600MG  Q12H  PO
     Route: 048
     Dates: start: 20051007, end: 20051012
  2. ACETAMINOPHEN [Concomitant]
  3. ASORBIC ACID [Concomitant]
  4. ASPIRIN [Concomitant]
  5. ATENOLOL [Concomitant]
  6. CEFEPIME [Concomitant]
  7. VANCOMYCIN [Concomitant]
  8. CLOPIDOGREL [Concomitant]
  9. SSI [Concomitant]
  10. DILTIAZEM HCL [Concomitant]
  11. DOCUSATE SODIUM [Concomitant]
  12. EPOGEN [Concomitant]
  13. HYDROMORPHONE HCL [Concomitant]
  14. HUMULIN 70/30 [Concomitant]
  15. HUMULIN L [Concomitant]
  16. LANSOPRAZOLE [Concomitant]
  17. MAGNESIUM OXIDE [Concomitant]
  18. HEPARIN [Concomitant]
  19. MAGNESIUM SULFATE [Concomitant]
  20. METOPROLOL [Concomitant]
  21. MORPHINE [Concomitant]
  22. NEPHROCAP [Concomitant]
  23. ONDANSETRON [Concomitant]

REACTIONS (1)
  - PLATELET COUNT DECREASED [None]
